FAERS Safety Report 4441405-2 (Version None)
Quarter: 2004Q3

REPORT INFORMATION
  Report Type: 
  Country: None (occurrence: None)
  Receive Date: 20040728
  Receipt Date: 20040407
  Transmission Date: 20050211
  Serious: No
  Sender: FDA-Public Use
  Company Number: USA040464384

PATIENT
  Age: 43 Year
  Sex: Male

DRUGS (3)
  1. STRATTERA [Suspect]
     Indication: ATTENTION DEFICIT/HYPERACTIVITY DISORDER
     Dosage: 60 MG DAY
     Dates: start: 20040403
  2. PRAVACHOL [Concomitant]
  3. PRILOSEC [Concomitant]

REACTIONS (6)
  - BRUXISM [None]
  - CHILLS [None]
  - DRUG INEFFECTIVE [None]
  - FEELING DRUNK [None]
  - PILOERECTION [None]
  - YAWNING [None]
